FAERS Safety Report 6980162-2 (Version None)
Quarter: 2010Q3

REPORT INFORMATION
  Report Type: 
  Country: None (occurrence: None)
  Receive Date: 20100914
  Receipt Date: 20100906
  Transmission Date: 20110219
  Serious: Yes (Death)
  Sender: FDA-Public Use
  Company Number: TR-JNJFOC-20100901432

PATIENT
  Age: 27 Year
  Sex: Female

DRUGS (1)
  1. INVEGA [Suspect]
     Indication: MAJOR DEPRESSION
     Route: 048

REACTIONS (2)
  - MYOCARDIAL INFARCTION [None]
  - OFF LABEL USE [None]
